FAERS Safety Report 7539551-X (Version None)
Quarter: 2011Q2

REPORT INFORMATION
  Report Type: 
  Country: None (occurrence: None)
  Receive Date: 20110610
  Receipt Date: 20110527
  Transmission Date: 20111010
  Serious: Yes (Other)
  Sender: FDA-Public Use
  Company Number: GB-RANBAXY-2011RR-45197

PATIENT
  Age: 56 Year
  Sex: Female

DRUGS (6)
  1. FENOFIBRATE [Concomitant]
  2. ROSUVASTATIN [Concomitant]
  3. ATORVASTATIN [Suspect]
     Dosage: 10 MG, UNK
  4. METFORMIN HYDROCHLORIDE [Concomitant]
  5. SIMVASTATIN [Suspect]
     Dosage: 40 MG, UNK
  6. PRAVASTATIN [Concomitant]
     Indication: BLOOD CHOLESTEROL INCREASED

REACTIONS (2)
  - HIGH DENSITY LIPOPROTEIN DECREASED [None]
  - APOLIPOPROTEIN A-I DECREASED [None]
